FAERS Safety Report 7067846-5 (Version None)
Quarter: 2010Q4

REPORT INFORMATION
  Report Type: 
  Country: None (occurrence: None)
  Receive Date: 20101028
  Receipt Date: 20101019
  Transmission Date: 20110411
  Serious: Yes (Life-Threatening, Hospitalization, Other)
  Sender: FDA-Public Use
  Company Number: JP-PFIZER INC-2010113578

PATIENT
  Age: 72 Year
  Sex: Female
  Weight: 58 kg

DRUGS (15)
  1. AZULFIDINE [Suspect]
     Indication: RHEUMATOID ARTHRITIS
     Dosage: 500 MG, 2X/DAY
     Route: 048
     Dates: start: 20100803, end: 20100826
  2. RHEUMATREX [Suspect]
     Indication: RHEUMATOID ARTHRITIS
     Dosage: UNK
     Route: 048
     Dates: start: 20100803, end: 20100825
  3. PREDNISOLONE [Concomitant]
     Indication: RHEUMATOID ARTHRITIS
     Dosage: 5 MG, 1X/DAY
     Route: 048
     Dates: start: 20100803, end: 20100826
  4. MUCOSTA [Concomitant]
     Indication: GASTRITIS
     Dosage: 100 MG, 3X/DAY
     Route: 048
     Dates: start: 19970212
  5. COMELIAN [Concomitant]
     Indication: ANGINA PECTORIS
     Dosage: 100 MG, 3X/DAY
     Route: 048
     Dates: start: 19970212
  6. LANIRAPID [Concomitant]
     Indication: CARDIAC FAILURE CHRONIC
     Dosage: 0.1 MG, 1X/DAY
     Route: 048
     Dates: start: 19970212
  7. MEILAX [Concomitant]
     Indication: ANXIETY DISORDER
     Dosage: 1 MG, 1X/DAY
     Route: 048
     Dates: start: 19970212
  8. IMIDAPRIL HYDROCHLORIDE [Concomitant]
     Indication: HYPERTENSION
     Dosage: 5 MG, 1X/DAY
     Route: 048
     Dates: start: 19970212
  9. WARFARIN [Concomitant]
     Indication: ATRIAL FIBRILLATION
     Dosage: 1.5 MG, 1X/DAY
     Route: 048
     Dates: start: 19970212, end: 20100826
  10. AMARYL [Concomitant]
     Indication: DIABETES MELLITUS
     Dosage: 1 MG, 1X/DAY
     Route: 048
     Dates: start: 19970212
  11. NATRIX [Concomitant]
     Indication: HYPERTENSION
     Dosage: 1 MG, 1X/DAY
     Route: 048
     Dates: start: 19970212
  12. CARTEOLOL HYDROCHLORIDE [Concomitant]
     Indication: ANGINA PECTORIS
     Dosage: 5 MG, 2X/DAY
     Route: 048
     Dates: start: 19970212
  13. ALPRAZOLAM [Concomitant]
     Indication: ANXIETY DISORDER
     Dosage: 0.4 MG, 1X/DAY
     Route: 048
     Dates: start: 19970212
  14. HALCION [Concomitant]
     Indication: INSOMNIA
     Dosage: 0.25 MG, 1X/DAY
     Route: 048
     Dates: start: 19970212
  15. BIOFERMIN [Concomitant]
     Indication: COLITIS
     Dosage: 12 MG, 1X/DAY
     Route: 048
     Dates: start: 20091208

REACTIONS (4)
  - COLONIC POLYP [None]
  - DECREASED APPETITE [None]
  - GINGIVITIS [None]
  - PANCYTOPENIA [None]
